FAERS Safety Report 25729211 (Version 3)
Quarter: 2025Q4

REPORT INFORMATION
  Report Type: Spontaneous
  Country: JP (occurrence: JP)
  Receive Date: 20250827
  Receipt Date: 20251128
  Transmission Date: 20260117
  Serious: Yes (Other)
  Sender: EXELIXIS
  Company Number: JP-BRISTOL-MYERS SQUIBB COMPANY-2025-116933

PATIENT
  Age: 79 Year
  Sex: Male

DRUGS (4)
  1. CABOMETYX [Suspect]
     Active Substance: CABOZANTINIB S-MALATE
     Indication: Clear cell renal cell carcinoma
     Dosage: 60 MG, QD
  2. CABOMETYX [Suspect]
     Active Substance: CABOZANTINIB S-MALATE
     Dosage: 40 MG, QD
  3. YERVOY [Suspect]
     Active Substance: IPILIMUMAB
     Indication: Clear cell renal cell carcinoma
     Dosage: UNK
     Route: 041
  4. OPDIVO [Suspect]
     Active Substance: NIVOLUMAB
     Indication: Clear cell renal cell carcinoma
     Dosage: UNK
     Route: 041

REACTIONS (7)
  - Immune-mediated hepatic disorder [Unknown]
  - Clear cell renal cell carcinoma [Recovering/Resolving]
  - Gastrointestinal disorder [Unknown]
  - Dysphonia [Unknown]
  - Decreased appetite [Unknown]
  - Stomatitis [Unknown]
  - Rash [Unknown]
